FAERS Safety Report 9422218 (Version 2)
Quarter: 2013Q3

REPORT INFORMATION
  Report Type: Spontaneous
  Country: FR (occurrence: FR)
  Receive Date: 20130726
  Receipt Date: 20130809
  Transmission Date: 20140515
  Serious: Yes (Hospitalization, Other)
  Sender: FDA-Public Use
  Company Number: FR-PFIZER INC-2013213975

PATIENT
  Age: 77 Year
  Sex: Male

DRUGS (8)
  1. FLUOROURACILE PFIZER [Suspect]
     Indication: COLORECTAL CANCER
     Dosage: 5.6 G (800MG FOLLOWED BY 4800 MG), CYCLIC (FIRST CYCLE)
     Route: 042
     Dates: start: 20130411
  2. FLUOROURACILE PFIZER [Suspect]
     Dosage: 5.6 G (800MG FOLLOWED BY 4800 MG), (SECOND CYCLE)
     Route: 042
     Dates: start: 20130425
  3. AVASTIN [Suspect]
     Indication: COLORECTAL CANCER
     Dosage: 700 MG, CYCLIC (FIRST CYCLE, 5 MG/KG PER CYCLE)
     Route: 042
     Dates: start: 20130411
  4. AVASTIN [Suspect]
     Dosage: 700 MG, CYCLIC (SECOND CYCLE)
     Route: 042
     Dates: start: 20130425
  5. OXALIPLATIN ACCORD [Suspect]
     Indication: COLORECTAL CANCER
     Dosage: 170 MG, CYCLIC (FIRST CYCLE)
     Route: 042
     Dates: start: 20130411
  6. OXALIPLATIN ACCORD [Suspect]
     Dosage: 170 MG, CYCLIC (SECOND CYCLE)
     Route: 042
     Dates: start: 20130425
  7. CALCIUM FOLINATE ZENTIVA [Suspect]
     Indication: COLORECTAL CANCER
     Dosage: 800 MG, CYCLIC (FIRST CYCLE)
     Route: 042
     Dates: start: 20130411
  8. CALCIUM FOLINATE ZENTIVA [Suspect]
     Dosage: 800 MG, CYCLIC (SECOND CYCLE)
     Route: 042
     Dates: start: 20130425

REACTIONS (2)
  - Tumour perforation [Recovering/Resolving]
  - Peritonitis [Recovering/Resolving]
